FAERS Safety Report 7398289 (Version 7)
Quarter: 2015Q4

REPORT INFORMATION
  Report Type: Spontaneous
  Country: US (occurrence: US)
  Receive Date: 20100525
  Receipt Date: 20151112
  Transmission Date: 20160305
  Serious: Yes (Other)
  Sender: FDA-Public Use
  Company Number: US-BAXTER-2010BH013232

PATIENT

DRUGS (19)
  1. TRIAMCINOLONE ACETONIDE. [Concomitant]
     Active Substance: TRIAMCINOLONE ACETONIDE
     Indication: CUTANEOUS LUPUS ERYTHEMATOSUS
     Dosage: 1DOSAGE FORMS2X A DAY
     Route: 061
     Dates: start: 20080814
  2. PREDNISONE. [Concomitant]
     Active Substance: PREDNISONE
     Indication: PREMEDICATION
     Dosage: 20MILLIGRAMAS NEEDED
     Route: 048
     Dates: start: 20100616, end: 20100616
  3. CYANOCOBALAMIN. [Concomitant]
     Active Substance: CYANOCOBALAMIN
     Indication: PRODUCT USED FOR UNKNOWN INDICATION
     Dosage: 1000MICROGRAM1X A DAY
     Route: 048
     Dates: start: 20071105
  4. GAMMAGARD S/D [Suspect]
     Active Substance: HUMAN IMMUNOGLOBULIN G
     Dosage: 40GRAM1X A MONTH
     Route: 042
     Dates: start: 20100616, end: 20100616
  5. GAMMAGARD S/D [Suspect]
     Active Substance: HUMAN IMMUNOGLOBULIN G
     Dosage: 40GRAM1X A MONTH
     Route: 042
     Dates: start: 20100512, end: 20100512
  6. GAMMAGARD S/D [Suspect]
     Active Substance: HUMAN IMMUNOGLOBULIN G
     Dosage: UNK
     Route: 042
     Dates: start: 2001
  7. ROSUVASTATIN [Concomitant]
     Active Substance: ROSUVASTATIN
     Indication: PRODUCT USED FOR UNKNOWN INDICATION
     Dosage: 40MILLIGRAM1X A DAY
     Route: 048
     Dates: start: 20090609
  8. BUSPAR [Concomitant]
     Active Substance: BUSPIRONE HYDROCHLORIDE
     Indication: PRODUCT USED FOR UNKNOWN INDICATION
     Dosage: 5MILLIGRAM1X A DAY
     Dates: start: 20090729
  9. PRILOSEC [Concomitant]
     Active Substance: OMEPRAZOLE MAGNESIUM
     Indication: PRODUCT USED FOR UNKNOWN INDICATION
     Dosage: 20MILLIGRAM1X A DAY
     Route: 048
     Dates: start: 20090313
  10. TOPROL XL [Concomitant]
     Active Substance: METOPROLOL SUCCINATE
     Indication: PRODUCT USED FOR UNKNOWN INDICATION
     Dosage: 60MILLIGRAM1X A DAY
     Route: 048
     Dates: start: 20090729
  11. CAL-500 [Concomitant]
     Indication: PRODUCT USED FOR UNKNOWN INDICATION
     Dosage: 1DOSAGE FORMS2X A DAY
     Route: 048
  12. GAMMAGARD S/D [Suspect]
     Active Substance: HUMAN IMMUNOGLOBULIN G
     Indication: OFF LABEL USE
     Dosage: 40GRAM1X A MONTH
     Route: 042
     Dates: start: 20100414, end: 20100414
  13. GAMMAGARD S/D [Suspect]
     Active Substance: HUMAN IMMUNOGLOBULIN G
     Dosage: UNK
     Route: 042
     Dates: start: 2010, end: 2010
  14. NITROSTAT [Concomitant]
     Active Substance: NITROGLYCERIN
     Indication: PRODUCT USED FOR UNKNOWN INDICATION
     Dosage: .4MILLIGRAMAS NEEDED
     Route: 060
     Dates: start: 20090228
  15. IBUPROFEN. [Concomitant]
     Active Substance: IBUPROFEN
     Indication: PREMEDICATION
     Dosage: UNK
  16. GAMMAGARD S/D [Suspect]
     Active Substance: HUMAN IMMUNOGLOBULIN G
     Indication: MULTIFOCAL MOTOR NEUROPATHY
     Dosage: 40GRAM1X A MONTH
     Route: 042
     Dates: start: 20100317, end: 20100317
  17. RISEDRONATE SODIUM. [Concomitant]
     Active Substance: RISEDRONATE SODIUM
     Indication: PRODUCT USED FOR UNKNOWN INDICATION
     Dosage: 35MILLIGRAM1X A WEEK
     Route: 048
     Dates: start: 20091229
  18. PLAVIX [Concomitant]
     Active Substance: CLOPIDOGREL BISULFATE
     Indication: PRODUCT USED FOR UNKNOWN INDICATION
     Dosage: 75MILLIGRAM1X A DAY
     Route: 048
     Dates: start: 20090609
  19. ASPIRINE [Concomitant]
     Active Substance: ASPIRIN
     Indication: PRODUCT USED FOR UNKNOWN INDICATION
     Dosage: 81MILLIGRAM1X A DAY
     Route: 048
     Dates: start: 20071030

REACTIONS (5)
  - Pyrexia [Unknown]
  - Spinal pain [Unknown]
  - Musculoskeletal pain [Unknown]
  - Back pain [Unknown]
  - Pain in extremity [Unknown]

NARRATIVE: CASE EVENT DATE: 2010
